FAERS Safety Report 9033323 (Version 1)
Quarter: 2013Q1

REPORT INFORMATION
  Report Type: Other
  Country: GB (occurrence: GB)
  Receive Date: 20130128
  Receipt Date: 20130128
  Transmission Date: 20140127
  Serious: Yes (Disabling)
  Sender: FDA-Public Use
  Company Number: GB-WATSON-2013-01113

PATIENT
  Age: 15 Year
  Sex: Female
  Weight: 56 kg

DRUGS (1)
  1. FLUOXETINE HYDROCHLORIDE (UNKNOWN) [Suspect]
     Indication: OBSESSIVE THOUGHTS
     Dosage: 20MG EVERY 2 DAYS
     Route: 048
     Dates: start: 20120618, end: 20120702

REACTIONS (4)
  - Confusional state [Recovering/Resolving]
  - Amnesia [Recovering/Resolving]
  - Disorientation [Recovering/Resolving]
  - Inappropriate schedule of drug administration [Recovered/Resolved]
